FAERS Safety Report 23381358 (Version 2)
Quarter: 2024Q1

REPORT INFORMATION
  Report Type: Spontaneous
  Country: CN (occurrence: CN)
  Receive Date: 20240109
  Receipt Date: 20240115
  Transmission Date: 20240410
  Serious: Yes (Other)
  Sender: FDA-Public Use
  Company Number: None

PATIENT
  Age: 58 Year
  Sex: Male
  Weight: 64 kg

DRUGS (5)
  1. IVABRADINE HYDROCHLORIDE [Suspect]
     Active Substance: IVABRADINE HYDROCHLORIDE
     Indication: Heart rate abnormal
     Dosage: 2.5 MG, BID
     Route: 048
     Dates: start: 20231111
  2. LEVOFLOXACIN SODIUM [Suspect]
     Active Substance: LEVOFLOXACIN SODIUM
     Indication: Pneumonitis
     Dosage: 0.5 G, QD
     Route: 040
     Dates: start: 20231112, end: 20231114
  3. Su lai le [Concomitant]
     Indication: Heart rate abnormal
     Dosage: 2.5 MG, QD
     Route: 048
     Dates: start: 20231111, end: 20231116
  4. TICAGRELOR [Concomitant]
     Active Substance: TICAGRELOR
     Indication: Antiplatelet therapy
     Dosage: 90 MG, BID
     Route: 048
     Dates: start: 20231111, end: 20231116
  5. ASPIRIN [Concomitant]
     Active Substance: ASPIRIN
     Indication: Antiplatelet therapy
     Dosage: 100 MG, QD
     Route: 048
     Dates: start: 20231111, end: 20231116

REACTIONS (5)
  - Myocardial infarction [Unknown]
  - Arteriovenous malformation [Unknown]
  - Electrocardiogram QT prolonged [Recovering/Resolving]
  - White blood cell count decreased [Unknown]
  - Sinus tachycardia [Unknown]

NARRATIVE: CASE EVENT DATE: 20231113
